FAERS Safety Report 13157113 (Version 1)
Quarter: 2017Q1

REPORT INFORMATION
  Report Type: Report from Study
  Country: JP (occurrence: JP)
  Receive Date: 20170127
  Receipt Date: 20170127
  Transmission Date: 20170428
  Serious: Yes (Other)
  Sender: FDA-Public Use
  Company Number: JP-CIPLA LTD.-2017JP01085

PATIENT

DRUGS (4)
  1. PACLITAXEL. [Suspect]
     Active Substance: PACLITAXEL
     Indication: CERVIX CARCINOMA
     Dosage: 35 MG/M2, FOR 60 MINS, ONCE A WEEK
  2. CARBOPLATIN. [Suspect]
     Active Substance: CARBOPLATIN
     Dosage: AUC 5.0 FOR 30 MINS, 3 CYCLES WERE ADMINISTERED EVERY 3-4 WEEKS
  3. PACLITAXEL. [Suspect]
     Active Substance: PACLITAXEL
     Dosage: 175 MG/M2, IN 3 HOURS, 3 CYCLES WERE ADMINISTERED EVERY 3-4 WEEKS
  4. CARBOPLATIN. [Suspect]
     Active Substance: CARBOPLATIN
     Indication: CERVIX CARCINOMA
     Dosage: AUC 2.0 FOR 30 MINS, ONCE A WEEK

REACTIONS (1)
  - Cervix carcinoma recurrent [Unknown]
